FAERS Safety Report 18293428 (Version 1)
Quarter: 2020Q3

REPORT INFORMATION
  Report Type: Spontaneous
  Country: US (occurrence: US)
  Receive Date: 20200921
  Receipt Date: 20200921
  Transmission Date: 20201103
  Serious: Yes (Other)
  Sender: FDA-Public Use
  Company Number: None

PATIENT
  Age: 48 Year
  Sex: Female
  Weight: 66.15 kg

DRUGS (5)
  1. HYDROCLORIZIDE [Concomitant]
  2. B12 WITH IRON [Concomitant]
  3. LEVOTHYROXINE. [Suspect]
     Active Substance: LEVOTHYROXINE
     Indication: HYPOTHYROIDISM
     Dates: start: 20110901, end: 20200903
  4. MULTIVITIMIN [Concomitant]
     Active Substance: VITAMINS
  5. NATURE?THROID [Suspect]
     Active Substance: THYROID, PORCINE

REACTIONS (5)
  - Weight increased [None]
  - Alopecia [None]
  - Fatigue [None]
  - Feeling abnormal [None]
  - Constipation [None]

NARRATIVE: CASE EVENT DATE: 20180901
